FAERS Safety Report 10224548 (Version 1)
Quarter: 2014Q2

REPORT INFORMATION
  Report Type: Spontaneous
  Country: FR (occurrence: FR)
  Receive Date: 20140609
  Receipt Date: 20140609
  Transmission Date: 20141212
  Serious: Yes (Hospitalization)
  Sender: FDA-Public Use
  Company Number: FR-SA-2014SA069829

PATIENT
  Age: 83 Year
  Sex: Male

DRUGS (5)
  1. KARDEGIC [Suspect]
     Indication: PRODUCT USED FOR UNKNOWN INDICATION
     Route: 065
  2. PLAVIX [Suspect]
     Indication: PRODUCT USED FOR UNKNOWN INDICATION
     Route: 048
  3. CRESTOR [Concomitant]
  4. CARDENSIEL [Concomitant]
  5. EUPANTOL [Concomitant]

REACTIONS (2)
  - Oesophagitis ulcerative [Recovered/Resolved]
  - Gastrointestinal haemorrhage [Recovered/Resolved]
